FAERS Safety Report 5939446-9 (Version None)
Quarter: 2008Q4

REPORT INFORMATION
  Report Type: 
  Country: None (occurrence: None)
  Receive Date: 20081029
  Receipt Date: 20081017
  Transmission Date: 20090506
  Serious: Yes (Other)
  Sender: FDA-Public Use
  Company Number: TRP_05936_2008

PATIENT
  Age: 50 Year
  Sex: Female

DRUGS (2)
  1. RIBAVIRIN [Suspect]
     Indication: HEPATITIS C VIRUS TEST
     Dosage: 800 MG ORAL
     Route: 048
     Dates: start: 20020101
  2. PEGINTERFERON ALFA-2B (PEGINTERFERON ALFA-2B) [Suspect]
     Indication: HEPATITIS C VIRUS TEST
     Dosage: 1.5 MG/KG 1X/WEEK SUBCUTANEOUS
     Route: 058
     Dates: start: 20020101

REACTIONS (9)
  - ALANINE AMINOTRANSFERASE ABNORMAL [None]
  - BLOOD ALBUMIN DECREASED [None]
  - HEPATITIS C RNA POSITIVE [None]
  - HYPERLIPIDAEMIA [None]
  - NEPHROPATHY [None]
  - NEPHROPATHY TOXIC [None]
  - NEPHROTIC SYNDROME [None]
  - PROTEINURIA [None]
  - WEIGHT INCREASED [None]
